FAERS Safety Report 9435894 (Version 2)
Quarter: 2013Q4

REPORT INFORMATION
  Report Type: Spontaneous
  Country: CA (occurrence: CA)
  Receive Date: 20130801
  Receipt Date: 20131022
  Transmission Date: 20140711
  Serious: Yes (Hospitalization, Other)
  Sender: FDA-Public Use
  Company Number: CA-VERTEX PHARMACEUTICALS INC-2013-008451

PATIENT
  Age: 70 Year
  Sex: Male

DRUGS (12)
  1. INCIVEK [Suspect]
     Indication: HEPATITIS C
     Dosage: 600 MG, BID
     Route: 048
  2. INCIVEK [Suspect]
     Dosage: 750 MG, BID
     Route: 048
  3. PEGASYS [Suspect]
     Indication: HEPATITIS C
     Dosage: 135 ?G, QW
     Route: 058
  4. PEGASYS [Suspect]
     Dosage: 180 ?G, QW
     Route: 058
  5. PEGASYS [Suspect]
     Dosage: 180 ?G, QW
     Route: 058
  6. RIBAVIRIN [Suspect]
     Indication: HEPATITIS C
     Dosage: 400 MG, QD
     Route: 048
  7. RIBAVIRIN [Suspect]
     Dosage: 1400 MG, QD
     Route: 048
  8. RIBAVIRIN [Suspect]
     Dosage: 600 MG, QD
     Route: 048
  9. RIBAVIRIN [Suspect]
     Dosage: 1000 MG, QD
     Route: 048
  10. MEDAZEPAM [Concomitant]
  11. TEMAZEPAM [Concomitant]
  12. VITAMIN D [Concomitant]

REACTIONS (3)
  - Rash [Not Recovered/Not Resolved]
  - Pruritus [Not Recovered/Not Resolved]
  - Haemoglobin decreased [Not Recovered/Not Resolved]
